FAERS Safety Report 20576088 (Version 10)
Quarter: 2023Q1

REPORT INFORMATION
  Report Type: Report from Study
  Country: US (occurrence: US)
  Receive Date: 20220310
  Receipt Date: 20230309
  Transmission Date: 20230418
  Serious: Yes (Hospitalization, Other)
  Sender: FDA-Public Use
  Company Number: US-TAKEDA-2022TUS015351

PATIENT
  Sex: Female

DRUGS (3)
  1. MARIBAVIR [Suspect]
     Active Substance: MARIBAVIR
     Indication: Cytomegalovirus infection
     Dosage: 400 MILLIGRAM, BID
     Route: 048
     Dates: start: 20220210, end: 20230130
  2. TACROLIMUS [Suspect]
     Active Substance: TACROLIMUS
     Indication: Pain
     Dosage: UNK
     Route: 065
  3. CYCLOSPORINE [Suspect]
     Active Substance: CYCLOSPORINE
     Indication: Pain
     Dosage: UNK
     Route: 065

REACTIONS (13)
  - Platelet count decreased [Recovering/Resolving]
  - COVID-19 [Unknown]
  - Neuropathy peripheral [Unknown]
  - Senile dementia [Unknown]
  - Peripheral swelling [Unknown]
  - Bowel movement irregularity [Unknown]
  - Renal disorder [Unknown]
  - Pain [Unknown]
  - Mobility decreased [Unknown]
  - Arthritis [Unknown]
  - Hypoaesthesia [Unknown]
  - Nausea [Unknown]
  - Product use issue [Unknown]
